FAERS Safety Report 23853750 (Version 2)
Quarter: 2024Q2

REPORT INFORMATION
  Report Type: Other
  Country: US (occurrence: None)
  Receive Date: 20240514
  Receipt Date: 20240521
  Transmission Date: 20240715
  Serious: Yes (Hospitalization, Other)
  Sender: FDA-Public Use
  Company Number: US-ROCHE-3557547

PATIENT
  Age: 47 Year
  Sex: Female
  Weight: 108.96 kg

DRUGS (4)
  1. OCREVUS [Suspect]
     Active Substance: OCRELIZUMAB
     Indication: Relapsing-remitting multiple sclerosis
     Dosage: DATE OF TREATMENT, 06/OCT/2022
     Route: 042
     Dates: start: 202209
  2. OCREVUS [Suspect]
     Active Substance: OCRELIZUMAB
     Route: 042
     Dates: start: 20240205
  3. GABAPENTIN [Concomitant]
     Active Substance: GABAPENTIN
  4. TYSABRI [Concomitant]
     Active Substance: NATALIZUMAB

REACTIONS (7)
  - Sepsis [Recovering/Resolving]
  - Herpes zoster [Recovered/Resolved]
  - Scar [Not Recovered/Not Resolved]
  - Pyrexia [Recovered/Resolved]
  - Red blood cell count decreased [Unknown]
  - White blood cell count [Unknown]
  - COVID-19 [Recovered/Resolved]

NARRATIVE: CASE EVENT DATE: 20230601
